FAERS Safety Report 14434851 (Version 1)
Quarter: 2018Q1

REPORT INFORMATION
  Report Type: Spontaneous
  Country: DE (occurrence: DE)
  Receive Date: 20180125
  Receipt Date: 20180125
  Transmission Date: 20180509
  Serious: Yes (Other)
  Sender: FDA-Public Use
  Company Number: DE-ROCHE-2059446

PATIENT

DRUGS (3)
  1. PREDNISONE. [Concomitant]
     Active Substance: PREDNISONE
     Indication: EOSINOPHILIC GRANULOMATOSIS WITH POLYANGIITIS
     Dosage: MORE THAN 10 MG
     Route: 065
  2. RITUXIMAB. [Suspect]
     Active Substance: RITUXIMAB
     Indication: EOSINOPHILIC GRANULOMATOSIS WITH POLYANGIITIS
     Dosage: (2 X 1000 MG GIVEN 2 WEEKS APART)
     Route: 065
  3. COTRIMOXAZOLE [Concomitant]
     Active Substance: SULFAMETHOXAZOLE\TRIMETHOPRIM
     Indication: OPPORTUNISTIC INFECTION PROPHYLAXIS
     Dosage: 960 MG, QW3
     Route: 065

REACTIONS (6)
  - Lung disorder [Unknown]
  - Disease recurrence [Unknown]
  - Pharyngeal disorder [Unknown]
  - Ear disorder [Unknown]
  - Eosinophilic granulomatosis with polyangiitis [Unknown]
  - Nasal disorder [Unknown]
